FAERS Safety Report 9247790 (Version 1)
Quarter: 2013Q1

REPORT INFORMATION
  Report Type: Spontaneous
  Country: US (occurrence: None)
  Receive Date: 20130305
  Receipt Date: 20130305
  Transmission Date: 20140127
  Serious: Yes (Hospitalization)
  Sender: FDA-Public Use
  Company Number: 163-21880-12101503

PATIENT
  Age: 79 Year
  Sex: Female
  Weight: 78.02 kg

DRUGS (1)
  1. REVLIMID [Suspect]
     Indication: PLASMA CELL MYELOMA
     Dosage: 15 MG, 1 IN 1 D, PO   08/2011 - TEMPORARILY
     Route: 048
     Dates: start: 201108

REACTIONS (1)
  - Localised infection [None]
